FAERS Safety Report 18193078 (Version 1)
Quarter: 2020Q3

REPORT INFORMATION
  Report Type: Spontaneous
  Country: US (occurrence: US)
  Receive Date: 20200825
  Receipt Date: 20200825
  Transmission Date: 20201103
  Serious: Yes (Disabling)
  Sender: FDA-Public Use
  Company Number: None

PATIENT
  Age: 63 Year
  Sex: Male
  Weight: 108 kg

DRUGS (9)
  1. FLINSTONE WITH IRON PROBIOTICS [Concomitant]
  2. COREYDEE HAND SANITIZER [Concomitant]
     Active Substance: ALCOHOL
  3. CALCITRIOLE [Concomitant]
  4. PROCRIT [Concomitant]
     Active Substance: ERYTHROPOIETIN
  5. VIT D [Concomitant]
     Active Substance: VITAMIN D NOS
  6. CALCIUM ACETATE 660MG [Suspect]
     Active Substance: CALCIUM ACETATE
     Indication: PRODUCT USED FOR UNKNOWN INDICATION
     Dosage: ?          QUANTITY:2 TABLET(S);?
     Route: 048
     Dates: start: 20200725, end: 20200726
  7. ALLOPURINOL. [Concomitant]
     Active Substance: ALLOPURINOL
  8. SYNTHROID [Concomitant]
     Active Substance: LEVOTHYROXINE SODIUM
  9. DOXISOZIN [Concomitant]

REACTIONS (7)
  - Nausea [None]
  - Diarrhoea [None]
  - Product substitution issue [None]
  - Headache [None]
  - Dehydration [None]
  - Abdominal pain [None]
  - Asthenia [None]

NARRATIVE: CASE EVENT DATE: 20200725
